FAERS Safety Report 4890498-7 (Version None)
Quarter: 2006Q2

REPORT INFORMATION
  Report Type: 
  Country: None (occurrence: None)
  Receive Date: 20060123
  Receipt Date: 20060123
  Transmission Date: 20061013
  Serious: Yes (Other)
  Sender: FDA-Public Use
  Company Number: None

PATIENT
  Age: 65 Year
  Sex: Female

DRUGS (12)
  1. PHENOBARBITAL TAB [Suspect]
     Dates: start: 20041002, end: 20041008
  2. PHENYTOIN [Suspect]
     Dosage: 200 MG TWICE PER DAY
     Dates: start: 20040917, end: 20041007
  3. KEPPRA [Concomitant]
  4. CLONAZEPAM [Concomitant]
  5. LAMICTAL [Concomitant]
  6. NEURONTIN [Concomitant]
  7. CARBAMAZEPINE (TEGRATOL) [Concomitant]
  8. NORVASC [Concomitant]
  9. ATENOLOL [Concomitant]
  10. ARICEPT [Concomitant]
  11. PROTONIX [Concomitant]
  12. SULFAMETHOXAZOLE [Concomitant]

REACTIONS (23)
  - BLOOD BICARBONATE DECREASED [None]
  - BLOOD CHLORIDE DECREASED [None]
  - BLOOD SODIUM DECREASED [None]
  - BLOOD UREA INCREASED [None]
  - CHOLELITHIASIS [None]
  - DUODENAL ULCER [None]
  - EMBOLISM [None]
  - GASTRIC ULCER [None]
  - GASTROINTESTINAL HAEMORRHAGE [None]
  - GRAND MAL CONVULSION [None]
  - HAEMATOCRIT DECREASED [None]
  - HELICOBACTER PYLORI IDENTIFICATION TEST POSITIVE [None]
  - HYPOTENSION [None]
  - INJURY [None]
  - LIVER DISORDER [None]
  - PERITONEAL EFFUSION [None]
  - PLEURAL EFFUSION [None]
  - PULMONARY EMBOLISM [None]
  - RASH [None]
  - RECTAL HAEMORRHAGE [None]
  - SPLENIC HAEMORRHAGE [None]
  - SPLENIC INJURY [None]
  - WHITE BLOOD CELL COUNT INCREASED [None]
